FAERS Safety Report 12893586 (Version 2)
Quarter: 2016Q4

REPORT INFORMATION
  Report Type: Spontaneous
  Country: ZA (occurrence: ZA)
  Receive Date: 20161028
  Receipt Date: 20161118
  Transmission Date: 20170207
  Serious: Yes (Other)
  Sender: FDA-Public Use
  Company Number: PHHY2016ZA148909

PATIENT
  Age: 52 Year
  Sex: Female

DRUGS (2)
  1. ESTRADOT [Suspect]
     Active Substance: ESTRADIOL
     Indication: HORMONE REPLACEMENT THERAPY
     Dosage: 2 DF, BIW
     Route: 062
     Dates: start: 20160304, end: 20160801
  2. SERC [Concomitant]
     Active Substance: BETAHISTINE HYDROCHLORIDE
     Indication: VERTIGO
     Dosage: 20 MG, UNK
     Route: 048
     Dates: start: 20160304, end: 20160518

REACTIONS (1)
  - Gingival hypertrophy [Recovered/Resolved]

NARRATIVE: CASE EVENT DATE: 20160614
